FAERS Safety Report 21799060 (Version 1)
Quarter: 2022Q4

REPORT INFORMATION
  Report Type: Spontaneous
  Country: US (occurrence: US)
  Receive Date: 20221230
  Receipt Date: 20221230
  Transmission Date: 20230113
  Serious: No
  Sender: FDA-Public Use
  Company Number: US-BRISTOL-MYERS SQUIBB COMPANY-2022-154794

PATIENT
  Age: 53 Year
  Sex: Male
  Weight: 63.96 kg

DRUGS (1)
  1. REVLIMID [Suspect]
     Active Substance: LENALIDOMIDE
     Indication: Plasma cell myeloma
     Dosage: 2.5MG CAPSULES  3 TIMES A DAY FOR 2 WEEKS ON, 1 WEEK OFF^. IT IS NOT CLEAR WHETHER THE PATIENT IS TA
     Dates: start: 20140528

REACTIONS (1)
  - Off label use [Unknown]
